FAERS Safety Report 7480949-6 (Version None)
Quarter: 2011Q2

REPORT INFORMATION
  Report Type: 
  Country: None (occurrence: None)
  Receive Date: 20110506
  Receipt Date: 20110428
  Transmission Date: 20111010
  Serious: No
  Sender: FDA-Public Use
  Company Number: 1000020342

PATIENT
  Age: 75 Year
  Sex: Male

DRUGS (5)
  1. SYMBICORT FORTE (BUDESONIDE, FORMOTEROL FUMARATE) [Concomitant]
  2. CIPROFLOXACIN [Concomitant]
  3. ROFLUMILAST (ROFLUMILAST) (TABLETS) [Suspect]
     Indication: CHRONIC OBSTRUCTIVE PULMONARY DISEASE
     Dosage: 500 MCG (500 MCG, 1 IN 1 D), ORAL
     Route: 048
     Dates: start: 20110407, end: 20110408
  4. VENTOLIN [Concomitant]
  5. SPIRIVA [Concomitant]

REACTIONS (2)
  - VENTRICULAR TACHYCARDIA [None]
  - VENTRICULAR EXTRASYSTOLES [None]
